FAERS Safety Report 6284424-6 (Version None)
Quarter: 2009Q3

REPORT INFORMATION
  Report Type: 
  Country: None (occurrence: None)
  Receive Date: 20090727
  Receipt Date: 20090717
  Transmission Date: 20100115
  Serious: Yes (Other)
  Sender: FDA-Public Use
  Company Number: CH-ROCHE-644910

PATIENT
  Age: 47 Year
  Sex: Male

DRUGS (3)
  1. CAPECITABINE [Suspect]
     Dosage: FREQUENCY: D (DAILY)
     Route: 048
     Dates: start: 20081215, end: 20090507
  2. BEVACIZUMAB [Suspect]
     Dosage: FREQUENCY: 3 WEEKS
     Route: 042
     Dates: start: 20081215, end: 20090629
  3. ELOXATIN [Concomitant]
     Dates: start: 20081215, end: 20090507

REACTIONS (2)
  - MALIGNANT NEOPLASM PROGRESSION [None]
  - NEUROPATHY PERIPHERAL [None]
